FAERS Safety Report 9474511 (Version 3)
Quarter: 2013Q3

REPORT INFORMATION
  Report Type: Spontaneous
  Country: US (occurrence: US)
  Receive Date: 20130823
  Receipt Date: 20130920
  Transmission Date: 20140515
  Serious: Yes (Hospitalization, Other)
  Sender: FDA-Public Use
  Company Number: US-BAXTER-2013BAX030994

PATIENT
  Age: 87 Year
  Sex: Male
  Weight: 79.5 kg

DRUGS (2)
  1. DIANEAL LOW CALCIUM [Suspect]
     Indication: PERITONEAL DIALYSIS
     Route: 033
     Dates: start: 20120827
  2. DIANEAL LOW CALCIUM [Suspect]
     Indication: PERITONEAL DIALYSIS
     Route: 033
     Dates: start: 20120827

REACTIONS (7)
  - Sepsis [Recovering/Resolving]
  - Candida infection [Recovering/Resolving]
  - Gait disturbance [Recovering/Resolving]
  - Fluid intake reduced [Recovering/Resolving]
  - Hypophagia [Recovering/Resolving]
  - Peritoneal cloudy effluent [Unknown]
  - Dehydration [Unknown]
